FAERS Safety Report 6379493-9 (Version None)
Quarter: 2009Q3

REPORT INFORMATION
  Report Type: 
  Country: None (occurrence: None)
  Receive Date: 20090923
  Receipt Date: 20090923
  Transmission Date: 20100115
  Serious: Yes (Hospitalization)
  Sender: FDA-Public Use
  Company Number: None

PATIENT
  Sex: Male
  Weight: 25.9 kg

DRUGS (6)
  1. CYCLOPHOSPHAMIDE [Suspect]
     Dosage: 2000 MG
  2. CYTARABINE [Suspect]
     Dosage: 1200 MG
  3. MERCAPTOPURINE [Suspect]
     Dosage: 1700 MG
  4. METHOTREXATE [Suspect]
     Dosage: 48 MG
  5. ONCASPAR [Suspect]
     Dosage: 2500 IU
  6. VINCRISTINE SULFATE [Suspect]
     Dosage: 3 MG

REACTIONS (8)
  - ACUTE RESPIRATORY FAILURE [None]
  - ANAEMIA [None]
  - BLOOD PRESSURE DECREASED [None]
  - CARDIO-RESPIRATORY ARREST [None]
  - PARAINFLUENZAE VIRUS INFECTION [None]
  - RESPIRATORY DISTRESS [None]
  - THROMBOCYTOPENIA [None]
  - VIRAL INFECTION [None]
